FAERS Safety Report 9904553 (Version 3)
Quarter: 2014Q3

REPORT INFORMATION
  Report Type: Spontaneous
  Country: US (occurrence: US)
  Receive Date: 20140218
  Receipt Date: 20140723
  Transmission Date: 20150326
  Serious: Yes (Other)
  Sender: FDA-Public Use
  Company Number: US-NOVOPROD-400202

PATIENT
  Age: 10 Year
  Sex: Female
  Weight: 32.3 kg

DRUGS (1)
  1. NORDITROPIN [Suspect]
     Active Substance: SOMATROPIN
     Indication: DWARFISM
     Dosage: 1.6 MG, DAILY
     Route: 058
     Dates: start: 201310

REACTIONS (3)
  - Convulsion [Recovered/Resolved]
  - Syncope [Recovered/Resolved]
  - Concussion [Recovered/Resolved]

NARRATIVE: CASE EVENT DATE: 20140203
